FAERS Safety Report 15789688 (Version 1)
Quarter: 2019Q1

REPORT INFORMATION
  Report Type: Spontaneous
  Country: US (occurrence: US)
  Receive Date: 20190104
  Receipt Date: 20190104
  Transmission Date: 20190417
  Serious: Yes (Other)
  Sender: FDA-Public Use
  Company Number: US-PFIZER INC-2018534256

PATIENT
  Age: 31 Year
  Sex: Male

DRUGS (1)
  1. THROMBIN [Suspect]
     Active Substance: THROMBIN
     Indication: FACTOR V INHIBITION
     Dosage: UNK
     Route: 061

REACTIONS (4)
  - International normalised ratio increased [Unknown]
  - Epistaxis [Unknown]
  - Activated partial thromboplastin time prolonged [Unknown]
  - Factor V inhibition [Unknown]
